FAERS Safety Report 5790132-8 (Version None)
Quarter: 2008Q2

REPORT INFORMATION
  Report Type: 
  Country: None (occurrence: None)
  Receive Date: 20080626
  Receipt Date: 20080407
  Transmission Date: 20081010
  Serious: No
  Sender: FDA-Public Use
  Company Number: A0687454A

PATIENT
  Age: 52 Year
  Sex: Female
  Weight: 139.1 kg

DRUGS (5)
  1. ALLI [Suspect]
     Dates: start: 20070727
  2. GEODON [Concomitant]
  3. REMERON [Concomitant]
  4. UNSPECIFIED MEDICATION [Concomitant]
  5. DARVOCET [Concomitant]

REACTIONS (2)
  - CONSTIPATION [None]
  - WEIGHT INCREASED [None]
